FAERS Safety Report 14837673 (Version 1)
Quarter: 2018Q2

REPORT INFORMATION
  Report Type: Spontaneous
  Country: DE (occurrence: DE)
  Receive Date: 20180502
  Receipt Date: 20180502
  Transmission Date: 20180711
  Serious: Yes (Other)
  Sender: FDA-Public Use
  Company Number: DE-TEVA-2018-DE-886393

PATIENT
  Age: 65 Year
  Sex: Male

DRUGS (12)
  1. FUROSEMID-RATIOPHARM 125 MG TABLETTEN [Suspect]
     Active Substance: FUROSEMIDE
     Indication: RALES
  2. VIGANTOLETTEN 1000 I.E. [Concomitant]
  3. JARDIANCE [Concomitant]
     Active Substance: EMPAGLIFLOZIN
  4. ENTRESTO 49 MG/51 MG [Concomitant]
  5. GLIMEPIRID 2 MG [Concomitant]
  6. BELOC ZOK 47,5 MG [Concomitant]
  7. BYETTA 10 MICROGRAM [Concomitant]
  8. XIPAMID 10 MG [Concomitant]
  9. METFORMIN [Concomitant]
     Active Substance: METFORMIN HYDROCHLORIDE
  10. ASS 50 MG [Concomitant]
  11. AMLODIPIN 5 MG [Concomitant]
  12. FUROSEMID-RATIOPHARM 125 MG TABLETTEN [Suspect]
     Active Substance: FUROSEMIDE
     Indication: DYSPNOEA
     Dosage: 250 MILLIGRAM DAILY;
     Dates: start: 20180421, end: 20180422

REACTIONS (8)
  - Visual impairment [Unknown]
  - Gait disturbance [Unknown]
  - Thirst decreased [Unknown]
  - Prescription drug used without a prescription [Unknown]
  - Dizziness [Unknown]
  - Weight decreased [Unknown]
  - Blood pressure decreased [Unknown]
  - Photopsia [Unknown]

NARRATIVE: CASE EVENT DATE: 20180421
